FAERS Safety Report 22253349 (Version 2)
Quarter: 2023Q2

REPORT INFORMATION
  Report Type: Report from Study
  Country: US (occurrence: US)
  Receive Date: 20230426
  Receipt Date: 20230502
  Transmission Date: 20230721
  Serious: No
  Sender: FDA-Public Use
  Company Number: US-002147023-NVSC2023US094754

PATIENT
  Age: 54 Year
  Sex: Female
  Weight: 87 kg

DRUGS (2)
  1. COSENTYX [Suspect]
     Active Substance: SECUKINUMAB
     Indication: Axial spondyloarthritis
     Dosage: 150 MG, QMO
     Route: 058
     Dates: start: 202211
  2. COSENTYX [Suspect]
     Active Substance: SECUKINUMAB
     Dosage: 300 MG, QMO
     Route: 058

REACTIONS (5)
  - Arthralgia [Recovering/Resolving]
  - Arthritis [Recovering/Resolving]
  - Back pain [Recovering/Resolving]
  - Upper respiratory tract infection [Recovering/Resolving]
  - Therapeutic product ineffective [Recovering/Resolving]

NARRATIVE: CASE EVENT DATE: 20230201
